FAERS Safety Report 5002408-2 (Version None)
Quarter: 2006Q2

REPORT INFORMATION
  Report Type: 
  Country: None (occurrence: None)
  Receive Date: 20060510
  Receipt Date: 20060430
  Transmission Date: 20061013
  Serious: Yes (Other)
  Sender: FDA-Public Use
  Company Number: 2006058381

PATIENT
  Sex: Female

DRUGS (1)
  1. RELPAX [Suspect]
     Indication: ILL-DEFINED DISORDER

REACTIONS (1)
  - COELIAC DISEASE [None]
